FAERS Safety Report 5812149-7 (Version None)
Quarter: 2008Q3

REPORT INFORMATION
  Report Type: 
  Country: None (occurrence: None)
  Receive Date: 20080711
  Receipt Date: 20080625
  Transmission Date: 20090109
  Serious: Yes (Other)
  Sender: FDA-Public Use
  Company Number: DSA_32058_2008

PATIENT
  Sex: Female

DRUGS (3)
  1. RENIVACE (RENIVACE - ENALAPRIL MALEATE) 5 MG (NOT SPECIFIED) [Suspect]
     Dosage: NOT THE PRESCRIBED AMOUNT ORAL
     Route: 048
  2. CALCIUM CHANNEL BLOCKERS (CALCIUM CHANNEL BLOCKER) [Suspect]
     Dosage: NOT THE PRESCRIBED AMOUNT ORAL
     Route: 048
  3. ANTIPSYCHOTICS [Concomitant]

REACTIONS (4)
  - HYPOTENSION [None]
  - INTENTIONAL OVERDOSE [None]
  - SELF-MEDICATION [None]
  - SUICIDE ATTEMPT [None]
